FAERS Safety Report 9500457 (Version 1)
Quarter: 2013Q3

REPORT INFORMATION
  Report Type: Spontaneous
  Country: US (occurrence: None)
  Receive Date: 20130904
  Receipt Date: 20130904
  Transmission Date: 20140515
  Serious: Yes (Life-Threatening)
  Sender: FDA-Public Use
  Company Number: None

PATIENT
  Age: 47 Year
  Sex: Male
  Weight: 84.82 kg

DRUGS (26)
  1. LANTUS SOLOSTAR [Suspect]
     Dosage: 28 UNITS ONCE DAILY GIVEN INTO/UNDER THE SKIN
     Dates: start: 20130829, end: 20130831
  2. HUMALOG KWIK PEN [Concomitant]
  3. SYNTHROID [Concomitant]
  4. IC LIOTHYRONINE SOD [Concomitant]
  5. RITILIN SR [Concomitant]
  6. TESTOSTERONE TD [Concomitant]
  7. DHEA E4M [Concomitant]
  8. PANCREAZE [Concomitant]
  9. THRONE RESEARCH BETAINE HCL [Concomitant]
  10. PEPSIN [Concomitant]
  11. VITAMIN C [Concomitant]
  12. D3 [Concomitant]
  13. B6 [Concomitant]
  14. B12 [Concomitant]
  15. CENTRUM MULTI-VITAMIN [Concomitant]
  16. ASPIRIN [Concomitant]
  17. COQ10 [Concomitant]
  18. OMEGA 3 [Concomitant]
  19. FISH OIL [Concomitant]
  20. CALCIUM [Concomitant]
  21. GLUCOSAMINE SULFATE/ CONDROITIN SULFATE [Concomitant]
  22. SHARK CARTILLAGE [Concomitant]
  23. CHROMIUM PICOLINATE [Concomitant]
  24. OREGANO OIL [Concomitant]
  25. ALBION CHELATED MAGNESIUM [Concomitant]
  26. HYDROXY METHYLBULYRATE (HMB) [Concomitant]

REACTIONS (1)
  - Blood glucose decreased [None]
